FAERS Safety Report 24296891 (Version 1)
Quarter: 2024Q3

REPORT INFORMATION
  Report Type: Spontaneous
  Country: CN (occurrence: CN)
  Receive Date: 20240909
  Receipt Date: 20240909
  Transmission Date: 20241016
  Serious: Yes (Hospitalization, Disabling, Other)
  Sender: ORGANON
  Company Number: CN-ORGANON-O2409CHN000389

PATIENT
  Age: 79 Year
  Sex: Male
  Weight: 50 kg

DRUGS (10)
  1. FOSAMAX [Suspect]
     Active Substance: ALENDRONATE SODIUM
     Indication: Osteoporosis
     Dosage: 70 MG, QW, PO
     Route: 048
     Dates: start: 20240829, end: 20240829
  2. LORNOXICAM [Suspect]
     Active Substance: LORNOXICAM
     Indication: Back pain
     Dosage: 8 MG, QD, IV DRIP
     Route: 041
     Dates: start: 20240827, end: 20240829
  3. EPERISONE HYDROCHLORIDE [Suspect]
     Active Substance: EPERISONE HYDROCHLORIDE
     Indication: Back pain
     Dosage: 50 MG, TID
     Route: 048
     Dates: start: 20240822, end: 20240829
  4. IMRECOXIB [Suspect]
     Active Substance: IMRECOXIB
     Indication: Back pain
     Dosage: 0.1G, BID, PO
     Route: 048
     Dates: start: 20240822, end: 20240829
  5. XARELTO [Concomitant]
     Active Substance: RIVAROXABAN
     Indication: Atrial fibrillation
     Dosage: 15 MG, QD
     Route: 048
     Dates: start: 20220608, end: 20240829
  6. HEPTODIN [Concomitant]
     Active Substance: LAMIVUDINE
     Indication: Hepatitis viral
     Dosage: 100 MG, QD, PO
     Route: 048
     Dates: start: 20231010, end: 20240829
  7. PANTOPRAZOLE SODIUM [Concomitant]
     Active Substance: PANTOPRAZOLE SODIUM
     Indication: Chronic gastritis
     Dosage: 40 MG, QD,(ENTERIC-COATED TABLETS (HELOSHE)  )
     Route: 048
     Dates: start: 20220810, end: 20240829
  8. METOPROLOL SUCCINATE [Concomitant]
     Active Substance: METOPROLOL SUCCINATE
     Indication: Cardiac failure
     Dosage: 47.5 MG, QD, PO
     Route: 048
     Dates: start: 20220608, end: 20240829
  9. SPIRONOLACTONE [Concomitant]
     Active Substance: SPIRONOLACTONE
     Indication: Cardiac failure
     Dosage: 20 MG, BID, PO
     Route: 048
     Dates: start: 20220608, end: 20240829
  10. ATORVASTATIN CALCIUM [Concomitant]
     Active Substance: ATORVASTATIN CALCIUM
     Indication: Hyperlipidaemia
     Dosage: 20 MG, QD, PO
     Route: 048
     Dates: start: 20220810, end: 20240829

REACTIONS (4)
  - Upper gastrointestinal haemorrhage [Recovering/Resolving]
  - Haematemesis [Recovering/Resolving]
  - Pneumonia [Unknown]
  - Peripheral swelling [Unknown]

NARRATIVE: CASE EVENT DATE: 20240830
